FAERS Safety Report 19738004 (Version 1)
Quarter: 2021Q3

REPORT INFORMATION
  Report Type: Report from Study
  Country: DE (occurrence: DE)
  Receive Date: 20210823
  Receipt Date: 20210823
  Transmission Date: 20211014
  Serious: Yes (Other)
  Sender: FDA-Public Use
  Company Number: DE-MYLANLABS-2021M1053434

PATIENT
  Sex: Male

DRUGS (2)
  1. VALPROATE [Concomitant]
     Active Substance: VALPROIC ACID
     Indication: PRODUCT USED FOR UNKNOWN INDICATION
     Dosage: UNK
  2. LEVETIRACETAM. [Suspect]
     Active Substance: LEVETIRACETAM
     Indication: EPILEPSY
     Dosage: 300 MILLIGRAM, 2X/DAY (BID)

REACTIONS (3)
  - Epilepsy [Unknown]
  - Respiratory distress [Unknown]
  - Drug ineffective [Unknown]
